FAERS Safety Report 9124722 (Version 1)
Quarter: 2013Q1

REPORT INFORMATION
  Report Type: Spontaneous
  Country: NL (occurrence: NL)
  Receive Date: 20130116
  Receipt Date: 20130116
  Transmission Date: 20140127
  Serious: Yes (Hospitalization)
  Sender: FDA-Public Use
  Company Number: PHHY2013NL003510

PATIENT
  Sex: Male

DRUGS (3)
  1. ZOMETA [Suspect]
     Indication: PROSTATE CANCER METASTATIC
     Dosage: 4 MG, EVERY 28 DAYS
     Route: 042
     Dates: start: 20110525
  2. ZOMETA [Suspect]
     Dosage: 4 MG, EVERY 28 DAYS
     Route: 042
     Dates: start: 20121214
  3. ZOMETA [Suspect]
     Dosage: 4 MG, EVERY 28 DAYS
     Route: 042
     Dates: start: 20130111

REACTIONS (1)
  - Gout [Recovering/Resolving]
